FAERS Safety Report 19212844 (Version 2)
Quarter: 2021Q4

REPORT INFORMATION
  Report Type: Other
  Country: US (occurrence: US)
  Receive Date: 20210504
  Receipt Date: 20211025
  Transmission Date: 20220303
  Serious: Yes (Other)
  Sender: FDA-Public Use
  Company Number: US-ROCHE-2818971

PATIENT
  Sex: Female
  Weight: 93.07 kg

DRUGS (10)
  1. OCREVUS [Suspect]
     Active Substance: OCRELIZUMAB
     Indication: Multiple sclerosis
     Dosage: (PRESCRIBED AS 300MG ON DAY 1 AND DAY 15 AND 600 MG ONCE IN 6 MONTHS)
     Route: 042
     Dates: start: 2017
  2. OCREVUS [Suspect]
     Active Substance: OCRELIZUMAB
     Indication: Relapsing multiple sclerosis
     Dosage: 12/MAY/2021
     Route: 042
  3. VITAMIN B2 [Concomitant]
     Active Substance: RIBOFLAVIN
  4. VITAMIN B12 [Concomitant]
     Active Substance: CYANOCOBALAMIN
     Dosage: TAKES 2 PILLS OF 1000 MG ONCE A DAY IN MORNING
  5. VITAMIN D3 [Concomitant]
     Active Substance: CHOLECALCIFEROL
     Dosage: TAKES 3 PILLS OF 30 MCG = 90 MCG
     Dates: start: 202102
  6. VITAMIN C [Concomitant]
     Active Substance: ASCORBIC ACID
  7. MELATONIN [Concomitant]
     Active Substance: MELATONIN
     Indication: Insomnia
  8. ADDERALL [Concomitant]
     Active Substance: AMPHETAMINE ASPARTATE\AMPHETAMINE SULFATE\DEXTROAMPHETAMINE SACCHARATE\DEXTROAMPHETAMINE SULFATE
     Route: 048
     Dates: start: 202009
  9. MODAFINIL [Concomitant]
     Active Substance: MODAFINIL
     Dates: start: 202004, end: 2020
  10. MODERNA COVID-19 VACCINE [Concomitant]
     Active Substance: CX-024414
     Dates: start: 2021, end: 2021

REACTIONS (14)
  - COVID-19 [Unknown]
  - Fall [Unknown]
  - Fatigue [Not Recovered/Not Resolved]
  - Ankle fracture [Recovered/Resolved]
  - Swelling [Not Recovered/Not Resolved]
  - Gait disturbance [Not Recovered/Not Resolved]
  - Asthenia [Not Recovered/Not Resolved]
  - Joint stiffness [Not Recovered/Not Resolved]
  - Bradykinesia [Not Recovered/Not Resolved]
  - Asthenia [Not Recovered/Not Resolved]
  - Musculoskeletal stiffness [Not Recovered/Not Resolved]
  - Peroneal nerve palsy [Not Recovered/Not Resolved]
  - Joint instability [Not Recovered/Not Resolved]
  - Migraine [Recovered/Resolved]

NARRATIVE: CASE EVENT DATE: 20180101
